FAERS Safety Report 5661504-7 (Version None)
Quarter: 2008Q1

REPORT INFORMATION
  Report Type: 
  Country: None (occurrence: None)
  Receive Date: 20080312
  Receipt Date: 20080304
  Transmission Date: 20080703
  Serious: Yes (Hospitalization, Disabling)
  Sender: FDA-Public Use
  Company Number: GB-ROCHE-551173

PATIENT
  Age: 36 Year
  Sex: Female
  Weight: 59 kg

DRUGS (35)
  1. MYCOPHENOLATE MOFETIL [Suspect]
     Indication: RENAL TRANSPLANT
     Route: 048
     Dates: start: 20040101
  2. MYCOPHENOLATE MOFETIL [Suspect]
     Route: 048
     Dates: start: 20040119, end: 20040315
  3. MYCOPHENOLATE MOFETIL [Suspect]
     Route: 048
     Dates: start: 20040315, end: 20040510
  4. MYCOPHENOLATE MOFETIL [Suspect]
     Route: 048
     Dates: start: 20040315, end: 20040524
  5. MYCOPHENOLATE MOFETIL [Suspect]
     Route: 048
     Dates: start: 20040524, end: 20040621
  6. MYCOPHENOLATE MOFETIL [Suspect]
     Route: 048
     Dates: start: 20040621, end: 20040722
  7. MYCOPHENOLATE MOFETIL [Suspect]
     Route: 048
     Dates: start: 20040722, end: 20040906
  8. MYCOPHENOLATE MOFETIL [Suspect]
     Route: 048
     Dates: start: 20040906, end: 20041213
  9. MYCOPHENOLATE MOFETIL [Suspect]
     Route: 048
     Dates: start: 20041213, end: 20050221
  10. MYCOPHENOLATE MOFETIL [Suspect]
     Route: 048
     Dates: start: 20050221, end: 20050322
  11. MYCOPHENOLATE MOFETIL [Suspect]
     Route: 048
     Dates: start: 20050322, end: 20051230
  12. MYCOPHENOLATE MOFETIL [Suspect]
     Route: 048
     Dates: start: 20060116, end: 20060130
  13. MYCOPHENOLATE MOFETIL [Suspect]
     Route: 048
     Dates: start: 20060130, end: 20060206
  14. MYCOPHENOLATE MOFETIL [Suspect]
     Route: 048
     Dates: start: 20060206
  15. ALFACALCIDOL [Concomitant]
     Route: 048
     Dates: start: 20060717, end: 20071030
  16. ASCORBIC ACID [Concomitant]
     Route: 048
     Dates: start: 20060206, end: 20060321
  17. AUGMENTIN '125' [Concomitant]
     Route: 048
     Dates: start: 20060504, end: 20060717
  18. CODEINE SUL TAB [Concomitant]
     Route: 048
     Dates: start: 20060320, end: 20060403
  19. CO-TRIMOXAZOLE [Concomitant]
     Route: 048
     Dates: start: 20061009
  20. DARBEPOETIN ALFA [Concomitant]
     Route: 058
     Dates: start: 20060116, end: 20060504
  21. DARBEPOETIN ALFA [Concomitant]
     Route: 058
     Dates: start: 20060504, end: 20060815
  22. DARBEPOETIN ALFA [Concomitant]
     Route: 058
     Dates: start: 20060815, end: 20070206
  23. FUROSEMIDE [Concomitant]
     Route: 048
     Dates: start: 20060130
  24. LOPERAMIDE HYDROCHLORIDE [Concomitant]
     Route: 048
     Dates: start: 20060320, end: 20060403
  25. OMEPRAZOLE [Concomitant]
     Route: 048
     Dates: start: 20060130
  26. ACETAMINOPHEN [Concomitant]
     Route: 048
     Dates: start: 20060403, end: 20060717
  27. PREDNISOLONE [Concomitant]
     Route: 048
  28. SODIUM BICARBONATE [Concomitant]
     Route: 048
     Dates: start: 20060109, end: 20060130
  29. SODIUM BICARBONATE [Concomitant]
     Route: 048
     Dates: start: 20060320, end: 20060327
  30. SODIUM BICARBONATE [Concomitant]
     Route: 048
     Dates: start: 20061009
  31. TRIMETHOPRIM [Concomitant]
     Route: 048
     Dates: start: 20060320, end: 20061009
  32. WARFARIN SODIUM [Concomitant]
     Route: 048
     Dates: start: 20060130, end: 20060321
  33. WARFARIN SODIUM [Concomitant]
     Route: 048
     Dates: start: 20060321, end: 20060327
  34. WARFARIN SODIUM [Concomitant]
     Route: 048
     Dates: start: 20060327, end: 20060717
  35. WARFARIN SODIUM [Concomitant]
     Route: 048
     Dates: start: 20060717

REACTIONS (1)
  - BRONCHIECTASIS [None]
